FAERS Safety Report 6440043-X (Version None)
Quarter: 2009Q4

REPORT INFORMATION
  Report Type: 
  Country: None (occurrence: None)
  Receive Date: 20091113
  Receipt Date: 20091025
  Transmission Date: 20100525
  Serious: Yes (Other)
  Sender: FDA-Public Use
  Company Number: FR-CELGENEUS-056-21880-09101900

PATIENT
  Sex: Female

DRUGS (5)
  1. REVLIMID [Suspect]
     Route: 048
     Dates: start: 20090903, end: 20090906
  2. DEXAMETHASONE [Concomitant]
     Route: 048
     Dates: start: 20090903, end: 20090924
  3. ASPIRIN [Concomitant]
     Indication: ARTHRITIS
     Route: 048
     Dates: start: 20080801
  4. TAHOR [Concomitant]
     Indication: ARTHRITIS
     Route: 048
     Dates: start: 20080801
  5. AVLOCARDYL [Concomitant]
     Indication: DRUG USE FOR UNKNOWN INDICATION
     Route: 048

REACTIONS (4)
  - ASTHENIA [None]
  - DYSARTHRIA [None]
  - VERTIGO [None]
  - VISUAL FIELD DEFECT [None]
